FAERS Safety Report 16062217 (Version 1)
Quarter: 2019Q1

REPORT INFORMATION
  Report Type: Spontaneous
  Country: PL (occurrence: PL)
  Receive Date: 20190312
  Receipt Date: 20190312
  Transmission Date: 20190418
  Serious: Yes (Hospitalization, Disabling, Other)
  Sender: FDA-Public Use
  Company Number: PL-MICRO LABS LIMITED-ML2019-00522

PATIENT
  Age: 40 Year
  Sex: Female

DRUGS (2)
  1. GLIMEPIRIDE. [Suspect]
     Active Substance: GLIMEPIRIDE
     Indication: TYPE 2 DIABETES MELLITUS
  2. INSULIN [Suspect]
     Active Substance: INSULIN NOS
     Indication: TYPE 2 DIABETES MELLITUS
     Dosage: TWO INJECTIONS OF A BIPHASIC SUSPENSION OF THE INSULIN ANALOG IN THE RATIO 30/70).

REACTIONS (2)
  - Drug abuse [Unknown]
  - Hypoglycaemia [Unknown]
